FAERS Safety Report 4610795-X (Version None)
Quarter: 2005Q2

REPORT INFORMATION
  Report Type: 
  Country: None (occurrence: None)
  Receive Date: 20050223
  Receipt Date: 20040129
  Transmission Date: 20051028
  Serious: Yes (Life-Threatening, Hospitalization, Other)
  Sender: FDA-Public Use
  Company Number: WAES 0402USA00032

PATIENT
  Age: 70 Year
  Sex: Male
  Weight: 73.9363 kg

DRUGS (10)
  1. ZOCOR [Suspect]
     Indication: HYPERCHOLESTEROLAEMIA
     Dosage: 80 MG/ DAILY/ PO,  40 MG/ DAILY/ PO
     Route: 048
     Dates: end: 20020101
  2. ZOCOR [Suspect]
     Indication: HYPERLIPIDAEMIA
     Dosage: 80 MG/ DAILY/ PO,  40 MG/ DAILY/ PO
     Route: 048
     Dates: end: 20020101
  3. ZOCOR [Suspect]
     Indication: HYPERCHOLESTEROLAEMIA
     Dosage: 80 MG/ DAILY/ PO,  40 MG/ DAILY/ PO
     Route: 048
     Dates: start: 20020101, end: 20031101
  4. ZOCOR [Suspect]
     Indication: HYPERLIPIDAEMIA
     Dosage: 80 MG/ DAILY/ PO,  40 MG/ DAILY/ PO
     Route: 048
     Dates: start: 20020101, end: 20031101
  5. ACIPHEX [Concomitant]
  6. LOPRESSOR [Concomitant]
  7. MONOPRIL [Concomitant]
  8. NITRO-BID [Concomitant]
  9. NORVASC [Concomitant]
  10. PLAVIX [Concomitant]

REACTIONS (2)
  - RENAL FAILURE ACUTE [None]
  - RHABDOMYOLYSIS [None]
